FAERS Safety Report 6151799-8 (Version None)
Quarter: 2009Q2

REPORT INFORMATION
  Report Type: 
  Country: None (occurrence: None)
  Receive Date: 20090410
  Receipt Date: 20090401
  Transmission Date: 20091009
  Serious: Yes (Other)
  Sender: FDA-Public Use
  Company Number: US-PFIZER INC-2009192551

PATIENT
  Sex: Female
  Weight: 85.728 kg

DRUGS (4)
  1. LIPITOR [Suspect]
     Indication: BLOOD CHOLESTEROL INCREASED
     Dosage: 10 MG, 1X/DAY
  2. CLONIDINE [Concomitant]
     Dosage: UNK
  3. QUINAPRIL [Concomitant]
     Dosage: UNK
  4. SYNTHROID [Concomitant]
     Dosage: UNK

REACTIONS (6)
  - BLOOD CHOLESTEROL INCREASED [None]
  - EAR DISORDER [None]
  - EAR INFECTION [None]
  - FLUID RETENTION [None]
  - TINNITUS [None]
  - VERTIGO [None]
